FAERS Safety Report 6311705-X (Version None)
Quarter: 2009Q3

REPORT INFORMATION
  Report Type: 
  Country: None (occurrence: None)
  Receive Date: 20090813
  Receipt Date: 20090813
  Transmission Date: 20100115
  Serious: Yes (Life-Threatening, Hospitalization, Other)
  Sender: FDA-Public Use
  Company Number: None

PATIENT
  Age: 85 Year
  Sex: Female
  Weight: 78.0187 kg

DRUGS (1)
  1. CLEOCIN [Suspect]
     Indication: TOOTH INFECTION
     Dosage: 1 - TID QID UNTIL GONE MAY 12TH OR 13TH

REACTIONS (4)
  - DIARRHOEA [None]
  - DISCOMFORT [None]
  - FREQUENT BOWEL MOVEMENTS [None]
  - NAUSEA [None]
